FAERS Safety Report 8786373 (Version 2)
Quarter: 2012Q4

REPORT INFORMATION
  Report Type: 
  Country: US (occurrence: US)
  Receive Date: 20120914
  Receipt Date: 20121019
  Transmission Date: 20130627
  Serious: Yes (Death)
  Sender: FDA-Public Use
  Company Number: US-PFIZER INC-2012226779

PATIENT
  Age: 76 Year
  Sex: Male

DRUGS (1)
  1. REVATIO [Suspect]
     Indication: PULMONARY HYPERTENSION
     Dosage: 20 mg, 3x/day
     Route: 048
     Dates: start: 20100419, end: 20120604

REACTIONS (2)
  - Hepatic failure [Fatal]
  - Renal failure [Fatal]
